FAERS Safety Report 6603029-8 (Version None)
Quarter: 2010Q1

REPORT INFORMATION
  Report Type: 
  Country: None (occurrence: None)
  Receive Date: 20100226
  Receipt Date: 20100217
  Transmission Date: 20100710
  Serious: Yes (Life-Threatening)
  Sender: FDA-Public Use
  Company Number: DE-BRISTOL-MYERS SQUIBB COMPANY-14980650

PATIENT
  Age: 58 Year
  Sex: Male

DRUGS (5)
  1. TAXOL [Suspect]
     Indication: NON-SMALL CELL LUNG CANCER
     Dosage: LAST DOSE ADMINISTERED ON 27JAN04. CYCLES2-6(23SEP,20OCT,17NOV,16DEC03,13JAN04);DAYS 1,8,15.
     Dates: start: 20030827
  2. VINORELBINE [Suspect]
     Indication: NON-SMALL CELL LUNG CANCER
     Dosage: LAST DOSE ADMINISTERED ON 27-JAN-2004. CYCLES2-6(23SEP,20OCT,17NOV,16DEC03,13JAN04).
     Dates: start: 20030827
  3. DEXAMETHASONE [Concomitant]
     Route: 048
     Dates: start: 20030827
  4. CLEMASTINE FUMARATE [Concomitant]
     Route: 042
     Dates: start: 20030827
  5. RANITIDINE [Concomitant]
     Route: 042
     Dates: start: 20030827

REACTIONS (4)
  - ASCITES [None]
  - CHOLESTASIS [None]
  - CONSTIPATION [None]
  - SUBILEUS [None]
